FAERS Safety Report 24578967 (Version 1)
Quarter: 2024Q4

REPORT INFORMATION
  Report Type: Report from Study
  Country: MA (occurrence: MA)
  Receive Date: 20241105
  Receipt Date: 20241105
  Transmission Date: 20250114
  Serious: Yes (Other)
  Sender: REGENERON
  Company Number: MA-BAYER-2024A155435

PATIENT
  Age: 81 Year
  Sex: Male

DRUGS (1)
  1. EYLEA [Suspect]
     Active Substance: AFLIBERCEPT
     Indication: Macular degeneration
     Dosage: UNK, 40 MG/ML, SOLUTION FOR INJECTION
     Route: 031
     Dates: start: 20240705

REACTIONS (2)
  - Intra-ocular injection complication [Not Recovered/Not Resolved]
  - Visual impairment [Not Recovered/Not Resolved]
